FAERS Safety Report 5835037-9 (Version None)
Quarter: 2008Q3

REPORT INFORMATION
  Report Type: 
  Country: None (occurrence: None)
  Receive Date: 20080728
  Receipt Date: 20080625
  Transmission Date: 20090109
  Serious: Yes (Hospitalization)
  Sender: FDA-Public Use
  Company Number: US023950

PATIENT
  Sex: Female
  Weight: 68.4932 kg

DRUGS (4)
  1. TREANDA [Suspect]
     Indication: CHRONIC LYMPHOCYTIC LEUKAEMIA
     Dosage: 176 MG 100 MG/M^2 QMON INTRAVENOUS
     Route: 042
     Dates: start: 20080529, end: 20080530
  2. ALLOPURINOL [Suspect]
     Indication: CHRONIC LYMPHOCYTIC LEUKAEMIA
     Dosage: ORAL
     Route: 048
     Dates: start: 20080529, end: 20080530
  3. AMOXICILLIN [Suspect]
     Indication: OROPHARYNGEAL PAIN
     Dosage: ORAL
     Route: 048
     Dates: start: 20080601, end: 20080601
  4. HYDROCHLOROTHIAZIDE [Concomitant]

REACTIONS (2)
  - DRUG ERUPTION [None]
  - DRUG HYPERSENSITIVITY [None]
